FAERS Safety Report 7081870-8 (Version None)
Quarter: 2010Q4

REPORT INFORMATION
  Report Type: 
  Country: None (occurrence: None)
  Receive Date: 20101103
  Receipt Date: 20101020
  Transmission Date: 20110411
  Serious: No
  Sender: FDA-Public Use
  Company Number: US-BAYER-201037940NA

PATIENT
  Age: 55 Year
  Sex: Female
  Weight: 75 kg

DRUGS (2)
  1. MAGNEVIST [Suspect]
     Indication: NUCLEAR MAGNETIC RESONANCE IMAGING
     Dosage: TOTAL DAILY DOSE: 10 ML
     Route: 042
     Dates: start: 20101019, end: 20101019
  2. PAXIL [Concomitant]

REACTIONS (5)
  - COUGH [None]
  - LACRIMATION INCREASED [None]
  - RHINORRHOEA [None]
  - SNEEZING [None]
  - THROAT IRRITATION [None]
